FAERS Safety Report 13286970 (Version 1)
Quarter: 2017Q1

REPORT INFORMATION
  Report Type: Spontaneous
  Country: SG (occurrence: SG)
  Receive Date: 20170302
  Receipt Date: 20170302
  Transmission Date: 20170428
  Serious: Yes (Other)
  Sender: FDA-Public Use
  Company Number: SG-SANTEN-201700336

PATIENT
  Age: 85 Year
  Sex: Male

DRUGS (1)
  1. CRAVIT [Suspect]
     Active Substance: LEVOFLOXACIN

REACTIONS (1)
  - Drug eruption [Unknown]

NARRATIVE: CASE EVENT DATE: 20170116
